FAERS Safety Report 20576625 (Version 2)
Quarter: 2022Q1

REPORT INFORMATION
  Report Type: Report from Study
  Country: US (occurrence: US)
  Receive Date: 20220310
  Receipt Date: 20220315
  Transmission Date: 20220423
  Serious: No
  Sender: FDA-Public Use
  Company Number: US-NOVARTISTESTPH-NVSC2022US056181

PATIENT
  Sex: Female
  Weight: 41.224 kg

DRUGS (2)
  1. TREPROSTINIL [Suspect]
     Active Substance: TREPROSTINIL
     Indication: Pulmonary arterial hypertension
     Dosage: 30 NANOGRAM PER KILOGRAM, CONT (DOSE: 30 NG/KG/MIN)
     Route: 042
     Dates: start: 20220211
  2. SILDENAFIL CITRATE [Concomitant]
     Active Substance: SILDENAFIL CITRATE
     Indication: Product used for unknown indication
     Dosage: UNK
     Route: 065

REACTIONS (7)
  - Faeces soft [Unknown]
  - Dyspnoea [Unknown]
  - Gait disturbance [Unknown]
  - Oedema peripheral [Unknown]
  - Pain in extremity [Unknown]
  - Chest pain [Unknown]
  - Fatigue [Unknown]
